FAERS Safety Report 13742568 (Version 3)
Quarter: 2018Q1

REPORT INFORMATION
  Report Type: Spontaneous
  Country: FI (occurrence: FI)
  Receive Date: 20170711
  Receipt Date: 20180301
  Transmission Date: 20180508
  Serious: Yes (Other)
  Sender: FDA-Public Use
  Company Number: FI-ELI_LILLY_AND_COMPANY-FI201707001844

PATIENT
  Sex: Male

DRUGS (1)
  1. ZYPADHERA [Suspect]
     Active Substance: OLANZAPINE PAMOATE
     Indication: PRODUCT USED FOR UNKNOWN INDICATION
     Dosage: UNK, UNKNOWN
     Route: 030

REACTIONS (13)
  - Paraesthesia [Unknown]
  - Dysarthria [Unknown]
  - Dizziness [Unknown]
  - Heart rate increased [Unknown]
  - Asthenia [Unknown]
  - Confusional state [Unknown]
  - Aggression [Unknown]
  - Hypertension [Unknown]
  - Fatigue [Unknown]
  - Slow speech [Unknown]
  - Atrial fibrillation [Unknown]
  - Tachycardia [Unknown]
  - Post-injection delirium sedation syndrome [Unknown]
